FAERS Safety Report 11246314 (Version 1)
Quarter: 2015Q3

REPORT INFORMATION
  Report Type: Spontaneous
  Country: US (occurrence: US)
  Receive Date: 20150708
  Receipt Date: 20150708
  Transmission Date: 20151125
  Serious: Yes (Death, Other)
  Sender: FDA-Public Use
  Company Number: US-CIPLA LTD.-2015US05299

PATIENT

DRUGS (3)
  1. ESCITALOPRAM [Suspect]
     Active Substance: ESCITALOPRAM OXALATE
     Dosage: UNK
     Route: 048
  2. ZOLPIDEM TARTARATE [Suspect]
     Active Substance: ZOLPIDEM TARTRATE
     Dosage: UNK
     Route: 048
  3. ATENOLOL. [Suspect]
     Active Substance: ATENOLOL
     Route: 048

REACTIONS (3)
  - Respiratory arrest [Unknown]
  - Completed suicide [Fatal]
  - Cardiac arrest [Unknown]
